FAERS Safety Report 7020873-6 (Version None)
Quarter: 2010Q3

REPORT INFORMATION
  Report Type: 
  Country: None (occurrence: None)
  Receive Date: 20100929
  Receipt Date: 20100921
  Transmission Date: 20110219
  Serious: Yes (Other)
  Sender: FDA-Public Use
  Company Number: JP-PFIZER INC-2010103821

PATIENT
  Age: 71 Year
  Sex: Male

DRUGS (4)
  1. LIPITOR [Suspect]
     Dosage: 5 MG, UNKNOWN/D
     Route: 048
     Dates: start: 20080701
  2. AMLODIPINE BESILATE [Concomitant]
     Dosage: UNK
     Route: 048
  3. GLYBURIDE [Concomitant]
     Dosage: UNK
     Route: 048
  4. VALSARTAN [Concomitant]
     Dosage: UNK
     Route: 048

REACTIONS (1)
  - PLATELET COUNT DECREASED [None]
